FAERS Safety Report 8243249-2 (Version None)
Quarter: 2012Q1

REPORT INFORMATION
  Report Type: 
  Country: None (occurrence: None)
  Receive Date: 20120329
  Receipt Date: 20120326
  Transmission Date: 20120608
  Serious: Yes (Hospitalization)
  Sender: FDA-Public Use
  Company Number: GB-AMGEN-GBRCT2011050277

PATIENT
  Age: 52 Year
  Sex: Female
  Weight: 102.8 kg

DRUGS (17)
  1. CYCLOPHOSPHAMIDE [Concomitant]
     Dosage: 1000 MG, Q3WK
     Route: 042
     Dates: start: 20110719, end: 20110830
  2. LISINOPRIL [Concomitant]
     Route: 048
     Dates: start: 20070618
  3. DOXAZOSIN MESYLATE [Concomitant]
     Route: 048
     Dates: start: 20110119, end: 20110923
  4. DOCETAXEL [Concomitant]
     Dosage: 200 MG, Q3WK
     Route: 042
     Dates: start: 20110920
  5. DEXAMETHASONE [Concomitant]
     Dosage: 4 MG, UNK
     Route: 048
     Dates: start: 20110719, end: 20110830
  6. PEGFILGRASTIM [Concomitant]
     Route: 058
     Dates: start: 20110921, end: 20110921
  7. METFORMIN HCL [Concomitant]
     Route: 048
     Dates: start: 20101122
  8. FLUOROURACIL [Concomitant]
     Dosage: 1000 MG, Q3WK
     Route: 042
     Dates: start: 20110719, end: 20110830
  9. METOCLOPRAMIDE [Concomitant]
     Dosage: 10 MG, UNK
     Route: 042
     Dates: start: 20110920, end: 20111109
  10. DIFFLAM [Concomitant]
     Route: 048
     Dates: start: 20110808, end: 20110814
  11. EPIRUBICIN [Concomitant]
     Dosage: 200 MG, Q3WK
     Route: 042
     Dates: start: 20110719, end: 20110830
  12. AMLODIPINE [Concomitant]
     Route: 048
     Dates: start: 20050104
  13. SIMVASTATIN [Concomitant]
     Route: 048
     Dates: start: 20070424
  14. BLINDED DENOSUMAB [Suspect]
     Indication: BREAST CANCER
     Dosage: UNK UNK, Q3WK
     Route: 058
     Dates: start: 20110816
  15. ONDANSETRON [Concomitant]
     Dosage: 8 MG, UNK
     Route: 048
     Dates: start: 20110719, end: 20110831
  16. BLINDED PLACEBO [Suspect]
     Indication: BREAST CANCER
     Dosage: UNK UNK, Q3WK
     Route: 058
     Dates: start: 20110816
  17. CALCICHEW D3 FORTE [Concomitant]
     Dosage: UNK
     Route: 048
     Dates: start: 20110816

REACTIONS (3)
  - NEUTROPENIC SEPSIS [None]
  - ARTHRALGIA [None]
  - LETHARGY [None]
